FAERS Safety Report 21860132 (Version 6)
Quarter: 2023Q4

REPORT INFORMATION
  Report Type: Report from Study
  Country: US (occurrence: US)
  Receive Date: 20230113
  Receipt Date: 20231005
  Transmission Date: 20240110
  Serious: Yes (Other)
  Sender: FDA-Public Use
  Company Number: US-SHIRE-US201827123

PATIENT
  Sex: Female
  Weight: 51 kg

DRUGS (35)
  1. HUMAN IMMUNOGLOBULIN G\HYALURONIDASE RECOMBINANT HUMAN [Suspect]
     Active Substance: HUMAN IMMUNOGLOBULIN G\HYALURONIDASE (HUMAN RECOMBINANT)
     Indication: Primary immunodeficiency syndrome
     Dosage: 25 GRAM, Q4WEEKS
     Route: 058
     Dates: start: 20220304
  2. HUMAN IMMUNOGLOBULIN G\HYALURONIDASE RECOMBINANT HUMAN [Suspect]
     Active Substance: HUMAN IMMUNOGLOBULIN G\HYALURONIDASE (HUMAN RECOMBINANT)
     Indication: Selective IgG subclass deficiency
     Dosage: 25 GRAM, Q4WEEKS
     Route: 065
  3. HUMAN IMMUNOGLOBULIN G\HYALURONIDASE RECOMBINANT HUMAN [Suspect]
     Active Substance: HUMAN IMMUNOGLOBULIN G\HYALURONIDASE (HUMAN RECOMBINANT)
     Indication: Oesophageal candidiasis
  4. HUMAN IMMUNOGLOBULIN G\HYALURONIDASE RECOMBINANT HUMAN [Suspect]
     Active Substance: HUMAN IMMUNOGLOBULIN G\HYALURONIDASE (HUMAN RECOMBINANT)
     Indication: Immunodeficiency common variable
  5. CYMBALTA [Suspect]
     Active Substance: DULOXETINE HYDROCHLORIDE
     Indication: Product used for unknown indication
     Dosage: UNK
     Route: 065
  6. DIPHENHYDRAMINE [Concomitant]
     Active Substance: DIPHENHYDRAMINE
  7. LYSINE [Concomitant]
     Active Substance: LYSINE
  8. CALCIUM VITAMIN D3 [Concomitant]
  9. EPINEPHRINE [Concomitant]
     Active Substance: EPINEPHRINE
  10. FLUTICASONE PROPIONATE [Concomitant]
     Active Substance: FLUTICASONE PROPIONATE
  11. AMBIEN CR [Concomitant]
     Active Substance: ZOLPIDEM TARTRATE
  12. BEVESPI AEROSPHERE [Concomitant]
     Active Substance: FORMOTEROL FUMARATE\GLYCOPYRROLATE
  13. LEVOCETIRIZINE DIHYDROCHLORIDE [Concomitant]
     Active Substance: LEVOCETIRIZINE DIHYDROCHLORIDE
  14. PLAQUENIL [Concomitant]
     Active Substance: HYDROXYCHLOROQUINE SULFATE
  15. ACETAMINOPHEN [Concomitant]
     Active Substance: ACETAMINOPHEN
  16. BISACODYL [Concomitant]
     Active Substance: BISACODYL
  17. NADOLOL [Concomitant]
     Active Substance: NADOLOL
  18. SODIUM CHLORIDE [Concomitant]
     Active Substance: SODIUM CHLORIDE
  19. ADDERALL [Concomitant]
     Active Substance: AMPHETAMINE ASPARTATE\AMPHETAMINE SULFATE\DEXTROAMPHETAMINE SACCHARATE\DEXTROAMPHETAMINE SULFATE
  20. LORATADINE [Concomitant]
     Active Substance: LORATADINE
  21. AZELASTINE HYDROCHLORIDE [Concomitant]
     Active Substance: AZELASTINE HYDROCHLORIDE
  22. CLARITIN [Concomitant]
     Active Substance: LORATADINE
  23. CLOTRIMAZOLE [Concomitant]
     Active Substance: CLOTRIMAZOLE
  24. ALBUTEROL SULFATE [Concomitant]
     Active Substance: ALBUTEROL SULFATE
  25. POTASSIUM GLUCONATE [Concomitant]
     Active Substance: POTASSIUM GLUCONATE
  26. CELECOXIB [Concomitant]
     Active Substance: CELECOXIB
  27. PROGESTERONE [Concomitant]
     Active Substance: PROGESTERONE
  28. LIDOCAINE [Concomitant]
     Active Substance: LIDOCAINE
  29. VITAMIN B COMPLEX [Concomitant]
     Active Substance: CYANOCOBALAMIN\DEXPANTHENOL\NIACINAMIDE\PYRIDOXINE HYDROCHLORIDE\RIBOFLAVIN 5^-PHOSPHATE SODIUM\THIA
  30. CALCIUM [Concomitant]
     Active Substance: CALCIUM
  31. ESTRADIOL / NORETHINDRONE ACETATE [Concomitant]
     Active Substance: ESTRADIOL\NORETHINDRONE ACETATE
  32. DICYCLOMINE HYDROCHLORIDE [Concomitant]
     Active Substance: DICYCLOMINE HYDROCHLORIDE
  33. MELATONIN [Concomitant]
     Active Substance: MELATONIN
  34. BETAMETHASONE VALERATE [Concomitant]
     Active Substance: BETAMETHASONE VALERATE
  35. VALACYCLOVIR [Concomitant]
     Active Substance: VALACYCLOVIR HYDROCHLORIDE

REACTIONS (16)
  - Loss of consciousness [Recovering/Resolving]
  - Fungal infection [Recovered/Resolved]
  - Feeling cold [Recovered/Resolved]
  - Anxiety [Recovering/Resolving]
  - Muscle twitching [Recovering/Resolving]
  - Heart rate increased [Recovering/Resolving]
  - Blood pressure decreased [Recovered/Resolved]
  - Muscle spasms [Recovering/Resolving]
  - Chest discomfort [Unknown]
  - Chest pain [Recovering/Resolving]
  - Blood pressure increased [Recovering/Resolving]
  - Headache [Unknown]
  - Dizziness [Recovering/Resolving]
  - Fatigue [Unknown]
  - Vomiting [Unknown]
  - Incorrect drug administration rate [Unknown]
